FAERS Safety Report 19165445 (Version 1)
Quarter: 2021Q2

REPORT INFORMATION
  Report Type: Report from Study
  Country: SA (occurrence: SA)
  Receive Date: 20210421
  Receipt Date: 20210421
  Transmission Date: 20210717
  Serious: Yes (Life-Threatening, Other)
  Sender: FDA-Public Use
  Company Number: SA-ASTRAZENECA-2021A334103

PATIENT
  Sex: Male

DRUGS (2)
  1. ESOMEPRAZOLE. [Suspect]
     Active Substance: ESOMEPRAZOLE MAGNESIUM
     Route: 048
  2. CIPROFLOXACIN. [Interacting]
     Active Substance: CIPROFLOXACIN
     Route: 065

REACTIONS (5)
  - Achlorhydria [Unknown]
  - Drug interaction [Unknown]
  - Infection [Unknown]
  - Septic shock [Unknown]
  - Staphylococcal infection [Unknown]
